FAERS Safety Report 17513567 (Version 2)
Quarter: 2020Q1

REPORT INFORMATION
  Report Type: Spontaneous
  Country: US (occurrence: US)
  Receive Date: 20200308
  Receipt Date: 20200310
  Transmission Date: 20200409
  Serious: Yes (Other)
  Sender: FDA-Public Use
  Company Number: US-009507513-2003USA001111

PATIENT
  Age: 26 Year
  Sex: Female
  Weight: 83.9 kg

DRUGS (3)
  1. TOPAMAX [Concomitant]
     Active Substance: TOPIRAMATE
     Dosage: 400 MILLIGRAM, DAILY
  2. NEXPLANON [Suspect]
     Active Substance: ETONOGESTREL
     Indication: CONTRACEPTION
     Dosage: 1 IMPLANT IN LEFT ARM, FOR 3 YEARS
     Route: 059
     Dates: start: 20170306
  3. NEXPLANON [Suspect]
     Active Substance: ETONOGESTREL
     Dosage: 1 IMPLANT IN LEFT ARM, FOR 3 YEARS
     Route: 059
     Dates: start: 20140221, end: 20170306

REACTIONS (5)
  - Device dislocation [Recovered/Resolved]
  - Implant site pain [Not Recovered/Not Resolved]
  - Migraine [Not Recovered/Not Resolved]
  - Complication of device removal [Recovered/Resolved]
  - Incorrect product administration duration [Unknown]

NARRATIVE: CASE EVENT DATE: 20170221
